FAERS Safety Report 5606123-3 (Version None)
Quarter: 2008Q1

REPORT INFORMATION
  Report Type: 
  Country: None (occurrence: None)
  Receive Date: 20080123
  Receipt Date: 20080123
  Transmission Date: 20080703
  Serious: Yes (Other)
  Sender: FDA-Public Use
  Company Number: None

PATIENT
  Sex: Female
  Weight: 68.0396 kg

DRUGS (1)
  1. FOSAMAX PLUS D [Suspect]
     Indication: OSTEOPOROSIS
     Dosage: 1 PILL ONCE A WEEK
     Dates: start: 20061001, end: 20080116

REACTIONS (5)
  - BONE PAIN [None]
  - HEART RATE IRREGULAR [None]
  - LOOSE TOOTH [None]
  - MYALGIA [None]
  - OESOPHAGEAL PAIN [None]
